FAERS Safety Report 8297065-6 (Version None)
Quarter: 2012Q2

REPORT INFORMATION
  Report Type: 
  Country: None (occurrence: None)
  Receive Date: 20120417
  Receipt Date: 20120417
  Transmission Date: 20120825
  Serious: Yes (Other)
  Sender: FDA-Public Use
  Company Number: None

PATIENT
  Age: 60 Year
  Sex: Female
  Weight: 58.9676 kg

DRUGS (3)
  1. RA. BISACODYL EC [Concomitant]
  2. DULCOLAX [Concomitant]
  3. POLYETHYLENE GLYCOL 3350 [Suspect]
     Indication: COLONOSCOPY
     Dosage: 1000 ONE LITER 1/4 OF CONTAINER
     Dates: start: 20120415

REACTIONS (5)
  - DIZZINESS [None]
  - ABDOMINAL DISTENSION [None]
  - DIARRHOEA [None]
  - MALAISE [None]
  - NAUSEA [None]
